FAERS Safety Report 8336644-4 (Version None)
Quarter: 2012Q2

REPORT INFORMATION
  Report Type: 
  Country: None (occurrence: None)
  Receive Date: 20120504
  Receipt Date: 20120426
  Transmission Date: 20120825
  Serious: Yes (Hospitalization)
  Sender: FDA-Public Use
  Company Number: CN-B.I. PHARMACEUTICALS,INC./RIDGEFIELD-2012-CS-00549CS

PATIENT
  Age: 72 Year

DRUGS (2)
  1. PRAMIPEXOLE DIHYDROCHLORIDE [Suspect]
     Indication: PARKINSON'S DISEASE
     Dosage: 1.125 MG
     Dates: start: 20070601
  2. MADOPAR [Concomitant]
     Indication: PARKINSON'S DISEASE
     Dosage: 0.5625 MG
     Dates: start: 20070601

REACTIONS (11)
  - PNEUMONIA [None]
  - MYALGIA [None]
  - ABDOMINAL PAIN UPPER [None]
  - ASTHENIA [None]
  - DECREASED IMMUNE RESPONSIVENESS [None]
  - SPINAL OSTEOARTHRITIS [None]
  - CONSTIPATION [None]
  - FLATULENCE [None]
  - DIZZINESS [None]
  - BRONCHIECTASIS [None]
  - CEREBROVASCULAR INSUFFICIENCY [None]
